FAERS Safety Report 6050903-X (Version None)
Quarter: 2009Q1

REPORT INFORMATION
  Report Type: 
  Country: None (occurrence: None)
  Receive Date: 20090126
  Receipt Date: 20080605
  Transmission Date: 20090719
  Serious: No
  Sender: FDA-Public Use
  Company Number: US-TYCO HEALTHCARE/MALLINCKRODT-T200800981

PATIENT

DRUGS (2)
  1. OPTIRAY 300 [Suspect]
     Indication: NUCLEAR MAGNETIC RESONANCE IMAGING
     Dosage: 25 ML, SINGLE
     Route: 042
     Dates: start: 20080403, end: 20080403
  2. OPTIRAY 300 [Suspect]
     Indication: COMPUTERISED TOMOGRAM THORAX

REACTIONS (2)
  - DIZZINESS [None]
  - FEELING ABNORMAL [None]
